FAERS Safety Report 20416079 (Version 1)
Quarter: 2022Q1

REPORT INFORMATION
  Report Type: Spontaneous
  Country: US (occurrence: None)
  Receive Date: 20220201
  Receipt Date: 20220201
  Transmission Date: 20220423
  Serious: Yes (Hospitalization)
  Sender: FDA-Public Use
  Company Number: None

PATIENT
  Sex: Female

DRUGS (3)
  1. BETHKIS [Suspect]
     Active Substance: TOBRAMYCIN
     Indication: Cystic fibrosis
     Route: 055
     Dates: start: 20161117
  2. PENICILLIN VK [Concomitant]
  3. TOPAMAX SPR CAP [Concomitant]

REACTIONS (1)
  - COVID-19 [None]
